FAERS Safety Report 5669219-6 (Version None)
Quarter: 2008Q1

REPORT INFORMATION
  Report Type: 
  Country: None (occurrence: None)
  Receive Date: 20080317
  Receipt Date: 20080312
  Transmission Date: 20080703
  Serious: Yes (Death)
  Sender: FDA-Public Use
  Company Number: US-BRISTOL-MYERS SQUIBB COMPANY-14113377

PATIENT
  Age: 60 Year
  Sex: Male

DRUGS (3)
  1. BARACLUDE [Suspect]
     Indication: HEPATITIS B
     Dates: start: 19800101
  2. SUSTIVA [Suspect]
     Indication: ACQUIRED IMMUNODEFICIENCY SYNDROME
     Dates: start: 19800101
  3. SUSTIVA [Suspect]
     Indication: HIV TEST POSITIVE
     Dates: start: 19800101

REACTIONS (1)
  - DEATH [None]
